FAERS Safety Report 15335602 (Version 7)
Quarter: 2020Q4

REPORT INFORMATION
  Report Type: Report from Study
  Country: US (occurrence: US)
  Receive Date: 20180830
  Receipt Date: 20201101
  Transmission Date: 20210113
  Serious: Yes (Death, Life-Threatening, Hospitalization, Other)
  Sender: FDA-Public Use
  Company Number: PHHY2018US086494

PATIENT
  Age: 21 Year
  Sex: Female
  Weight: 48.3 kg

DRUGS (4)
  1. CYCLOPHOSPHAMIDE. [Concomitant]
     Active Substance: CYCLOPHOSPHAMIDE
     Indication: CHEMOTHERAPY
     Route: 065
  2. FLUDARABINE [Concomitant]
     Active Substance: FLUDARABINE PHOSPHATE
     Indication: CHEMOTHERAPY
     Route: 065
  3. KYMRIAH [Suspect]
     Active Substance: TISAGENLECLEUCEL
     Indication: B-CELL TYPE ACUTE LEUKAEMIA
     Dosage: UNK UNK, ONCE/SINGLE (0.2E6/KG BODY WEIGHT)
     Route: 041
     Dates: start: 20180216
  4. LEVETIRACETAM. [Concomitant]
     Active Substance: LEVETIRACETAM
     Indication: PROPHYLAXIS
     Dosage: 500 MG, Q12H
     Route: 042

REACTIONS (17)
  - Malignant neoplasm progression [Fatal]
  - Treatment failure [Unknown]
  - Cytokine release syndrome [Recovered/Resolved]
  - Encephalopathy [Recovered/Resolved]
  - Somnolence [Unknown]
  - Dysphagia [Unknown]
  - Confusional state [Unknown]
  - Amnesia [Unknown]
  - Neurotoxicity [Unknown]
  - Acute respiratory distress syndrome [Unknown]
  - Rash [Unknown]
  - Cytopenia [Unknown]
  - Muscular weakness [Unknown]
  - Acute lymphocytic leukaemia recurrent [Fatal]
  - Pyrexia [Recovered/Resolved]
  - Abdominal distension [Unknown]
  - Mental status changes [Unknown]

NARRATIVE: CASE EVENT DATE: 20180309
